FAERS Safety Report 16382540 (Version 2)
Quarter: 2019Q2

REPORT INFORMATION
  Report Type: Spontaneous
  Country: GB (occurrence: GB)
  Receive Date: 20190603
  Receipt Date: 20190607
  Transmission Date: 20190711
  Serious: Yes (Other)
  Sender: FDA-Public Use
  Company Number: GB-IPSEN BIOPHARMACEUTICALS, INC.-2019-08902

PATIENT

DRUGS (4)
  1. 5-FLUOROURACIL [Concomitant]
     Active Substance: FLUOROURACIL
  2. STREPTOZOCIN [Concomitant]
     Active Substance: STREPTOZOCIN
  3. SOMATULINE AUTOGEL [Suspect]
     Active Substance: LANREOTIDE ACETATE
     Indication: NEUROENDOCRINE TUMOUR
     Route: 065
  4. CISPLATIN. [Concomitant]
     Active Substance: CISPLATIN

REACTIONS (4)
  - Neoplasm progression [Unknown]
  - Congestive cardiomyopathy [Unknown]
  - Tricuspid valve incompetence [Unknown]
  - Dilatation ventricular [Unknown]

NARRATIVE: CASE EVENT DATE: 200902
